FAERS Safety Report 6317672-7 (Version None)
Quarter: 2009Q3

REPORT INFORMATION
  Report Type: 
  Country: None (occurrence: None)
  Receive Date: 20090820
  Receipt Date: 20090820
  Transmission Date: 20100115
  Serious: Yes (Other)
  Sender: FDA-Public Use
  Company Number: None

PATIENT
  Age: 20 Year
  Sex: Female
  Weight: 68.0396 kg

DRUGS (1)
  1. AMOXICILLIN [Suspect]
     Indication: SINUSITIS BACTERIAL
     Dosage: 875MG TWICE DAILY PO
     Route: 048
     Dates: start: 20090819

REACTIONS (3)
  - MIGRAINE [None]
  - NAUSEA [None]
  - NO THERAPEUTIC RESPONSE [None]
